FAERS Safety Report 19588969 (Version 3)
Quarter: 2021Q3

REPORT INFORMATION
  Report Type: Report from Study
  Country: EG (occurrence: EG)
  Receive Date: 20210721
  Receipt Date: 20210914
  Transmission Date: 20211014
  Serious: Yes (Other)
  Sender: FDA-Public Use
  Company Number: EG-REGENERON PHARMACEUTICALS, INC.-2021-69565

PATIENT

DRUGS (2)
  1. EYLEA [Suspect]
     Active Substance: AFLIBERCEPT
     Indication: RETINAL DEGENERATION
     Dosage: UNK
     Route: 031
     Dates: start: 20201028
  2. EYLEA [Suspect]
     Active Substance: AFLIBERCEPT
     Indication: HAEMORRHAGE
     Dosage: UNK, RIGHT EYE
     Dates: start: 20210310, end: 20210310

REACTIONS (3)
  - Visual impairment [Not Recovered/Not Resolved]
  - Retinal degeneration [Not Recovered/Not Resolved]
  - Cataract operation [Recovering/Resolving]

NARRATIVE: CASE EVENT DATE: 202105
